FAERS Safety Report 8844607 (Version 1)
Quarter: 2012Q4

REPORT INFORMATION
  Report Type: 
  Country: US (occurrence: US)
  Receive Date: 20121017
  Receipt Date: 20121017
  Transmission Date: 20130627
  Serious: No
  Sender: FDA-Public Use
  Company Number: US-PFIZER INC-2012255054

PATIENT
  Sex: Female

DRUGS (1)
  1. ALAVERT [Suspect]
     Indication: HYPERSENSITIVITY
     Dosage: 10 mg, daily in the morning
     Dates: end: 2012

REACTIONS (2)
  - Drug ineffective [Unknown]
  - Pollakiuria [Recovered/Resolved]
